FAERS Safety Report 16039048 (Version 2)
Quarter: 2019Q2

REPORT INFORMATION
  Report Type: Report from Study
  Country: NL (occurrence: NL)
  Receive Date: 20190306
  Receipt Date: 20190412
  Transmission Date: 20190711
  Serious: Yes (Hospitalization, Other)
  Sender: FDA-Public Use
  Company Number: PHHY2019NL049763

PATIENT
  Age: 49 Year
  Sex: Female
  Weight: 70 kg

DRUGS (3)
  1. GILENYA [Suspect]
     Active Substance: FINGOLIMOD HYDROCHLORIDE
     Indication: RELAPSING-REMITTING MULTIPLE SCLEROSIS
     Dosage: 0.5 MG, QD
     Route: 048
     Dates: start: 20180509, end: 20190214
  2. PANTOPRAZOLE [Concomitant]
     Active Substance: PANTOPRAZOLE
     Indication: GASTROINTESTINAL DISORDER
     Dosage: 1 DF, UNK
     Route: 065
  3. PRAMIPEXOLE. [Concomitant]
     Active Substance: PRAMIPEXOLE
     Indication: RESTLESS LEGS SYNDROME
     Dosage: 6 DF, BID
     Route: 048

REACTIONS (12)
  - Hemiparesis [Recovered/Resolved with Sequelae]
  - Multiple sclerosis relapse [Unknown]
  - Gait disturbance [Recovered/Resolved with Sequelae]
  - Cerebral infarction [Unknown]
  - Ischaemic stroke [Recovered/Resolved with Sequelae]
  - Ischaemia [Unknown]
  - Blood cholesterol increased [Unknown]
  - Low density lipoprotein increased [Unknown]
  - Fall [Recovered/Resolved with Sequelae]
  - Sinus tachycardia [Unknown]
  - Sensory loss [Recovered/Resolved with Sequelae]
  - Antiphospholipid antibodies positive [Unknown]

NARRATIVE: CASE EVENT DATE: 20190205
